FAERS Safety Report 7884201-6 (Version None)
Quarter: 2011Q4

REPORT INFORMATION
  Report Type: 
  Country: None (occurrence: None)
  Receive Date: 20111102
  Receipt Date: 20111024
  Transmission Date: 20120403
  Serious: Yes (Hospitalization)
  Sender: FDA-Public Use
  Company Number: IT-BRISTOL-MYERS SQUIBB COMPANY-16196701

PATIENT
  Age: 83 Year
  Sex: Male

DRUGS (1)
  1. COUMADIN [Suspect]
     Dosage: 1 DOSAGE FORM = 1 UNIT
     Route: 048
     Dates: start: 20100831, end: 20110830

REACTIONS (2)
  - COAGULOPATHY [None]
  - HAEMATURIA [None]
